FAERS Safety Report 6261871-X (Version None)
Quarter: 2009Q3

REPORT INFORMATION
  Report Type: 
  Country: None (occurrence: None)
  Receive Date: 20090709
  Receipt Date: 20090702
  Transmission Date: 20100115
  Serious: Yes (Other)
  Sender: FDA-Public Use
  Company Number: A0795263A

PATIENT
  Age: 68 Year
  Sex: Female

DRUGS (12)
  1. ADVAIR HFA [Suspect]
     Indication: ASTHMA
     Route: 055
     Dates: start: 20050101
  2. METFORMIN HCL [Concomitant]
  3. SIMVASTATIN [Concomitant]
  4. ASPIRIN [Concomitant]
  5. OMEPRAZOLE [Concomitant]
  6. TRAMADOL [Concomitant]
  7. COZAAR [Concomitant]
  8. GABAPENTIN [Concomitant]
  9. FENOFIBRATE [Concomitant]
  10. SPIRIVA [Concomitant]
  11. PROAIR HFA [Concomitant]
  12. UNSPECIFIED MEDICATION [Concomitant]

REACTIONS (5)
  - CHRONIC OBSTRUCTIVE PULMONARY DISEASE [None]
  - HEADACHE [None]
  - NASAL CONGESTION [None]
  - PNEUMONIA [None]
  - PRODUCTIVE COUGH [None]
